FAERS Safety Report 18524105 (Version 1)
Quarter: 2020Q4

REPORT INFORMATION
  Report Type: Report from Study
  Country: CO (occurrence: CO)
  Receive Date: 20201119
  Receipt Date: 20201119
  Transmission Date: 20210114
  Serious: Yes (Other)
  Sender: FDA-Public Use
  Company Number: CO-TAKEDA-CO201805490

PATIENT

DRUGS (2)
  1. HUMAN IMMUNOGLOBULIN; HYALURONIDASE [Suspect]
     Active Substance: HUMAN IMMUNOGLOBULIN G\HYALURONIDASE RECOMBINANT HUMAN
     Indication: PRIMARY IMMUNODEFICIENCY SYNDROME
     Dosage: 40 GRAM, MONTHLY
     Route: 058
     Dates: start: 20200518
  2. KIOVIG [Suspect]
     Active Substance: HUMAN IMMUNOGLOBULIN G
     Indication: IMMUNODEFICIENCY
     Dosage: 20 MG, 1X A MONTH
     Route: 042
     Dates: start: 2017, end: 20180106

REACTIONS (3)
  - Weight increased [Unknown]
  - Pelvic fracture [Not Recovered/Not Resolved]
  - Body height increased [Unknown]

NARRATIVE: CASE EVENT DATE: 20180202
